FAERS Safety Report 9513449 (Version 3)
Quarter: 2013Q4

REPORT INFORMATION
  Report Type: Spontaneous
  Country: US (occurrence: US)
  Receive Date: 20130910
  Receipt Date: 20131015
  Transmission Date: 20140711
  Serious: No
  Sender: FDA-Public Use
  Company Number: US-009507513-1309USA003683

PATIENT
  Age: 40 Year
  Sex: Female
  Weight: 95.24 kg

DRUGS (1)
  1. CLARITIN-D-12 [Suspect]
     Indication: HYPERSENSITIVITY
     Dosage: 5 MG, ONCE
     Route: 048
     Dates: start: 20130904, end: 20130904

REACTIONS (5)
  - Vertigo [Recovered/Resolved]
  - Palpitations [Recovered/Resolved]
  - Balance disorder [Recovered/Resolved]
  - Dizziness [Recovered/Resolved]
  - Nausea [Recovered/Resolved]
